FAERS Safety Report 23470314 (Version 2)
Quarter: 2024Q3

REPORT INFORMATION
  Report Type: Spontaneous
  Country: DE (occurrence: DE)
  Receive Date: 20240202
  Receipt Date: 20240828
  Transmission Date: 20241017
  Serious: Yes (Other)
  Sender: MYLAN
  Company Number: DE-SA-2023SA381715

PATIENT
  Age: 25 Year
  Sex: Female

DRUGS (8)
  1. HYDROCORTISONE [Suspect]
     Active Substance: HYDROCORTISONE\HYDROCORTISONE ACETATE
     Indication: Adrenal insufficiency
     Dosage: 25 MILLIGRAM, QD (25 MG, QD)
     Route: 065
  2. DUPILUMAB [Suspect]
     Active Substance: DUPILUMAB
     Indication: Asthma
     Dosage: 600 MILLIGRAM (60 MG) (FIRST DOSE) (STOP DATE: 2021)
     Route: 058
     Dates: start: 202110
  3. CORTICOSTEROID NOS [Suspect]
     Active Substance: CORTICOSTEROID NOS
     Indication: Asthma
     Dosage: UNK
     Route: 061
  4. CORTICOSTEROID NOS [Suspect]
     Active Substance: CORTICOSTEROID NOS
     Indication: Asthma
     Dosage: UNK
     Route: 048
  5. OMALIZUMAB [Concomitant]
     Active Substance: OMALIZUMAB
     Indication: Asthma
     Dosage: 600 MILLIGRAM (4 WEEKS)
     Route: 058
     Dates: start: 2020, end: 202110
  6. MONTELUKAST [Concomitant]
     Active Substance: MONTELUKAST SODIUM
     Indication: Asthma
     Dosage: UNK
     Route: 065
  7. TIOTROPIUM [Concomitant]
     Active Substance: TIOTROPIUM
     Indication: Asthma
     Dosage: UNK
     Route: 065
  8. INDACATEROL ACETATE\MOMETASONE FUROATE [Concomitant]
     Active Substance: INDACATEROL ACETATE\MOMETASONE FUROATE
     Indication: Asthma
     Dosage: UNK
     Route: 065

REACTIONS (6)
  - Oral disorder [Unknown]
  - Candida infection [Recovered/Resolved]
  - Skin infection [Recovered/Resolved]
  - Serratia infection [Recovered/Resolved]
  - Dyspnoea [Unknown]
  - Condition aggravated [Unknown]
